FAERS Safety Report 10236580 (Version 1)
Quarter: 2014Q1

REPORT INFORMATION
  Report Type: Spontaneous
  Country: US (occurrence: None)
  Receive Date: 20140306
  Receipt Date: 20140306
  Transmission Date: 20141002
  Serious: Yes (Hospitalization)
  Sender: FDA-Public Use
  Company Number: 163-21880-13081923

PATIENT
  Age: 62 Year
  Sex: Female
  Weight: 90.7 kg

DRUGS (19)
  1. REVLIMID (LENALIDOMIDE) (5 MILLIGRAM, CAPSULES) [Suspect]
     Indication: PLASMA CELL MYELOMA
     Route: 048
     Dates: start: 201212, end: 2009
  2. ADVAIR DISKUS (SERETIDE MITE) (INHALANT) [Concomitant]
  3. ALPRAZOLAM (ALPRAZOLAM) (TABLETS) [Concomitant]
  4. AMBIEN (ZOLPIDEM TARTRATE) (TABLETS) [Concomitant]
  5. ASPIRIN (ENTERIC-COATED TABLET) [Concomitant]
  6. AZITHROMYCIN (AZITHROMYCIN) (TABLETS) [Concomitant]
  7. CHERATUSSIN AC (CHERATUSSIN AC) (LIQUID) [Concomitant]
  8. COMBIVENT (COMBIVENT) (AEROSOL FOR INHALATION) [Concomitant]
  9. FLEXERIL (CYCLOBENZAPRINE HYDROCHLORIDE) (TABLETS) [Concomitant]
  10. LEVOTHYROXINE SODIUM (LEVOTHYROXINE SODIUM) (TABLETS) [Concomitant]
  11. LYRICA (PREGABALIN) (CAPSULES) [Concomitant]
  12. MVI (MVI) (TABLETS) [Concomitant]
  13. ONDANSETRON (ONDANSETRON) (TABLETS) [Concomitant]
  14. PROMETHAZINE HCL (PROMETHAZINE HYDROCHLORIDE) (TABLETS) [Concomitant]
  15. TESSALON PERLE (BENZONATATE) (CAPSULES) [Concomitant]
  16. TRAMADOL HCL (TRAMADOL HYDROCHLORIDE) (TABLETS) [Concomitant]
  17. VALIUM (DIAZEPAM) (TABLETS) [Concomitant]
  18. VITAMIN B12 (CYANOCOBALAMIN) (TABLETS) [Concomitant]
  19. WELLBUTRIN (BUPROPION HYDROCHLORIDE) (SUSTAINED-RELEASE TABLET) [Concomitant]

REACTIONS (3)
  - Plasmacytoma [None]
  - Skin discolouration [None]
  - Somnolence [None]
